FAERS Safety Report 7597945-0 (Version None)
Quarter: 2011Q3

REPORT INFORMATION
  Report Type: 
  Country: None (occurrence: None)
  Receive Date: 20110708
  Receipt Date: 20110624
  Transmission Date: 20111222
  Serious: Yes (Hospitalization)
  Sender: FDA-Public Use
  Company Number: US-JNJFOC-20110700247

PATIENT

DRUGS (2)
  1. BENADRYL [Suspect]
     Route: 048
  2. BENADRYL [Suspect]
     Indication: PRODUCT USED FOR UNKNOWN INDICATION
     Dosage: 30 PILLS
     Route: 048

REACTIONS (1)
  - OVERDOSE [None]
